FAERS Safety Report 8333418-5 (Version None)
Quarter: 2012Q2

REPORT INFORMATION
  Report Type: 
  Country: None (occurrence: None)
  Receive Date: 20120503
  Receipt Date: 20120427
  Transmission Date: 20120825
  Serious: Yes (Hospitalization, Other)
  Sender: FDA-Public Use
  Company Number: US-PFIZER INC-2011151599

PATIENT
  Sex: Female

DRUGS (1)
  1. CHANTIX [Suspect]
     Indication: SMOKING CESSATION THERAPY
     Dosage: ONE PILL PER DAY
     Route: 048
     Dates: start: 20071101, end: 20080201

REACTIONS (4)
  - MOOD SWINGS [None]
  - SUICIDE ATTEMPT [None]
  - MENTAL DISORDER [None]
  - INTENTIONAL OVERDOSE [None]
